FAERS Safety Report 25364035 (Version 1)
Quarter: 2025Q2

REPORT INFORMATION
  Report Type: Spontaneous
  Country: CN (occurrence: CN)
  Receive Date: 20250527
  Receipt Date: 20250527
  Transmission Date: 20250717
  Serious: Yes (Hospitalization)
  Sender: VERITY PHARMACEUTICALS INC.
  Company Number: CN-VER-202500010

PATIENT
  Age: 63 Year
  Sex: Male
  Weight: 60 kg

DRUGS (2)
  1. TRIPTORELIN PAMOATE [Suspect]
     Active Substance: TRIPTORELIN PAMOATE
     Indication: Prostate cancer
     Dosage: POWDER AND SOLVENT FOR SUSPENSION FOR INJECTION;  1 BOTTLE/ONCE PER DAY APPROVAL NUMBER: H20130842
     Route: 030
     Dates: start: 20250321, end: 20250321
  2. DENOSUMAB [Suspect]
     Active Substance: DENOSUMAB
     Indication: Prostate cancer
     Dosage: INJECTION, DOSE: 1 BOTTLE APPROVAL NUMBER: S20190025 THE MOST RECENT USAGE TIME WAS 21 MAR 2025
     Route: 058

REACTIONS (3)
  - Cerebral infarction [Recovering/Resolving]
  - Osteomyelitis [Recovering/Resolving]
  - Hypertension [Recovering/Resolving]

NARRATIVE: CASE EVENT DATE: 20250424
